FAERS Safety Report 12189154 (Version 2)
Quarter: 2016Q1

REPORT INFORMATION
  Report Type: Spontaneous
  Country: DK (occurrence: DK)
  Receive Date: 20160317
  Receipt Date: 20160324
  Transmission Date: 20160526
  Serious: Yes (Other)
  Sender: FDA-Public Use
  Company Number: DK-BAXTER-2016BAX013067

PATIENT
  Age: 10 Year
  Sex: Male

DRUGS (16)
  1. MELPHALAN [Suspect]
     Active Substance: MELPHALAN
     Indication: ACUTE MYELOID LEUKAEMIA
  2. GEMTUZUMAB OZOGAMICIN [Concomitant]
     Active Substance: GEMTUZUMAB OZOGAMICIN
     Indication: ACUTE MYELOID LEUKAEMIA
     Route: 042
  3. CYTARABINE. [Concomitant]
     Active Substance: CYTARABINE
     Indication: ACUTE MYELOID LEUKAEMIA
     Route: 042
  4. IDARUBICIN [Concomitant]
     Active Substance: IDARUBICIN
     Indication: ACUTE MYELOID LEUKAEMIA
     Route: 042
  5. IDARUBICIN [Concomitant]
     Active Substance: IDARUBICIN
     Route: 042
  6. MITOXANTRONE [Concomitant]
     Active Substance: MITOXANTRONE HYDROCHLORIDE
     Indication: ACUTE MYELOID LEUKAEMIA
     Route: 042
  7. MELPHALAN [Suspect]
     Active Substance: MELPHALAN
     Indication: BONE MARROW CONDITIONING REGIMEN
     Route: 065
  8. BUSULPHAN [Suspect]
     Active Substance: BUSULFAN
     Indication: BONE MARROW CONDITIONING REGIMEN
     Route: 065
  9. MITOXANTRONE [Concomitant]
     Active Substance: MITOXANTRONE HYDROCHLORIDE
     Route: 042
  10. SENDOXAN [Suspect]
     Active Substance: CYCLOPHOSPHAMIDE
     Indication: ACUTE MYELOID LEUKAEMIA
  11. METHOTREXATE [Concomitant]
     Active Substance: METHOTREXATE
     Indication: ACUTE MYELOID LEUKAEMIA
     Route: 037
  12. BUSULPHAN [Suspect]
     Active Substance: BUSULFAN
     Indication: ACUTE MYELOID LEUKAEMIA
  13. METHOTREXATE [Concomitant]
     Active Substance: METHOTREXATE
     Route: 042
  14. SENDOXAN [Suspect]
     Active Substance: CYCLOPHOSPHAMIDE
     Indication: BONE MARROW CONDITIONING REGIMEN
     Route: 065
  15. 6-THIOGUANINE [Concomitant]
     Active Substance: THIOGUANINE
     Indication: ACUTE MYELOID LEUKAEMIA
     Route: 048
  16. GEMTUZUMAB OZOGAMICIN [Concomitant]
     Active Substance: GEMTUZUMAB OZOGAMICIN
     Route: 042

REACTIONS (2)
  - Graft versus host disease in skin [Recovered/Resolved]
  - Graft versus host disease in gastrointestinal tract [Recovered/Resolved]
